FAERS Safety Report 19911840 (Version 1)
Quarter: 2021Q4

REPORT INFORMATION
  Report Type: Spontaneous
  Country: US (occurrence: US)
  Receive Date: 20211001
  Receipt Date: 20211001
  Transmission Date: 20220303
  Serious: Yes (Hospitalization)
  Sender: FDA-Public Use
  Company Number: None

PATIENT
  Age: 6 Year
  Sex: Male

DRUGS (1)
  1. AFINITOR DISPERZ [Suspect]
     Active Substance: EVEROLIMUS
     Indication: Brain neoplasm malignant
     Route: 048
     Dates: start: 202109

REACTIONS (4)
  - Lethargy [None]
  - Pneumonia [None]
  - Seizure [None]
  - Fatigue [None]

NARRATIVE: CASE EVENT DATE: 20210901
